FAERS Safety Report 9337176 (Version 1)
Quarter: 2013Q2

REPORT INFORMATION
  Report Type: Spontaneous
  Country: US (occurrence: US)
  Receive Date: 20130607
  Receipt Date: 20130607
  Transmission Date: 20140414
  Serious: Yes (Hospitalization, Other)
  Sender: FDA-Public Use
  Company Number: US-TEVA-410138USA

PATIENT
  Age: 25 Year
  Sex: Male

DRUGS (1)
  1. MESALAZINE [Suspect]
     Indication: COLITIS ULCERATIVE
     Dosage: 1.5 GRAM DAILY;
     Route: 065

REACTIONS (1)
  - Tubulointerstitial nephritis [Recovered/Resolved with Sequelae]
